FAERS Safety Report 22927498 (Version 2)
Quarter: 2024Q1

REPORT INFORMATION
  Report Type: Spontaneous
  Country: CA (occurrence: CA)
  Receive Date: 20230911
  Receipt Date: 20240327
  Transmission Date: 20240409
  Serious: Yes (Hospitalization, Other)
  Sender: FDA-Public Use
  Company Number: CA-SANDOZ-SDZ2023CA025059

PATIENT
  Sex: Male

DRUGS (12)
  1. AMIKACIN [Suspect]
     Active Substance: AMIKACIN
     Indication: Mycobacterial infection
     Dosage: 1400 MG, MO-WE-FR
     Route: 042
     Dates: start: 20230619
  2. CLARITHROMYCIN [Suspect]
     Active Substance: CLARITHROMYCIN
     Indication: Mycobacterial infection
     Dosage: UNK
     Route: 065
     Dates: start: 20230619
  3. CLOFAZIMINE [Suspect]
     Active Substance: CLOFAZIMINE
     Indication: Mycobacterial infection
     Dosage: 100 MG, QD
     Route: 065
     Dates: start: 20230619
  4. CEFOXITIN SODIUM [Suspect]
     Active Substance: CEFOXITIN SODIUM
     Indication: Mycobacterial infection
     Dosage: UNK, START DATE: 17-JUL-2023
     Route: 065
  5. DOXYCYCLINE [Suspect]
     Active Substance: DOXYCYCLINE
     Indication: Mycobacterial infection
     Dosage: UNK
     Route: 065
     Dates: start: 20230619
  6. IMIPENEM [Suspect]
     Active Substance: IMIPENEM
     Indication: Mycobacterial infection
     Dosage: UNK
     Route: 065
     Dates: start: 20230619
  7. AZITHROMYCIN [Suspect]
     Active Substance: AZITHROMYCIN
     Indication: Immunomodulatory therapy
     Dosage: 500 MG, DIE
     Route: 048
     Dates: start: 20230619, end: 20230710
  8. CIPROFLOXACIN [Suspect]
     Active Substance: CIPROFLOXACIN
     Indication: Mycobacterial infection
     Dosage: UNK
     Route: 065
     Dates: start: 20230619
  9. LINEZOLID [Suspect]
     Active Substance: LINEZOLID
     Indication: Mycobacterial infection
     Dosage: 600 MG, DIE
     Route: 048
     Dates: start: 20230619, end: 20230717
  10. MOXIFLOXACIN HYDROCHLORIDE [Suspect]
     Active Substance: MOXIFLOXACIN HYDROCHLORIDE\MOXIFLOXACIN HYDROCHLORIDE MONOHYDRATE
     Indication: Mycobacterial infection
     Dosage: UNK
     Route: 047
     Dates: start: 20230619
  11. TIGECYCLINE [Suspect]
     Active Substance: TIGECYCLINE
     Indication: Mycobacterial infection
     Dosage: 50 MG, DIE
     Route: 042
     Dates: start: 20230619, end: 20230717
  12. SULFAMETHOXAZOLE\TRIMETHOPRIM [Suspect]
     Active Substance: SULFAMETHOXAZOLE\TRIMETHOPRIM
     Indication: Mycobacterial infection
     Dosage: UNK, BID, 1 CO DS
     Route: 065
     Dates: start: 20230619

REACTIONS (3)
  - Lactic acidosis [Unknown]
  - Thrombocytopenia [Unknown]
  - Nausea [Unknown]

NARRATIVE: CASE EVENT DATE: 20230703
